FAERS Safety Report 5025517-0 (Version None)
Quarter: 2006Q2

REPORT INFORMATION
  Report Type: 
  Country: None (occurrence: None)
  Receive Date: 20060607
  Receipt Date: 20060529
  Transmission Date: 20061013
  Serious: Yes (Disabling)
  Sender: FDA-Public Use
  Company Number: FR-2006-013521

PATIENT
  Age: 84 Year
  Sex: Female

DRUGS (6)
  1. SOTALOL HCL [Suspect]
     Dosage: 1 PER DAY
     Dates: start: 20050915
  2. PLAVIX [Suspect]
     Dosage: 75 MG, 1X/DAY, ORAL
     Route: 048
     Dates: start: 19970715
  3. LASIX [Suspect]
     Dosage: ORAL
     Route: 048
     Dates: start: 20050915
  4. RENITEC [Suspect]
     Dosage: ORAL
     Route: 048
     Dates: start: 20050915
  5. STILNOX [Suspect]
     Dosage: ORAL
     Route: 048
  6. SOMATULINE AUTOGEL (LANREOTIDE) [Suspect]
     Indication: HOT FLUSH
     Dosage: 3 DOSES, INTRAMUSCULAR
     Route: 030
     Dates: start: 20051001, end: 20051201

REACTIONS (4)
  - EXOPHTHALMOS [None]
  - EYE DISORDER [None]
  - HOT FLUSH [None]
  - MUSCLE HYPERTROPHY [None]
